FAERS Safety Report 7753680-7 (Version None)
Quarter: 2011Q3

REPORT INFORMATION
  Report Type: 
  Country: None (occurrence: None)
  Receive Date: 20110915
  Receipt Date: 20110915
  Transmission Date: 20111222
  Serious: Yes (Other)
  Sender: FDA-Public Use
  Company Number: None

PATIENT
  Age: 60 Year
  Sex: Female
  Weight: 53.523 kg

DRUGS (1)
  1. RECLAST [Suspect]
     Indication: OSTEOPOROSIS
     Dosage: 5
     Route: 041
     Dates: start: 20110415, end: 20110415

REACTIONS (11)
  - JOINT EFFUSION [None]
  - JOINT SWELLING [None]
  - PAIN IN EXTREMITY [None]
  - ARTHRALGIA [None]
  - MUSCULOSKELETAL PAIN [None]
  - CHILLS [None]
  - MOBILITY DECREASED [None]
  - OEDEMA PERIPHERAL [None]
  - BONE PAIN [None]
  - WEIGHT BEARING DIFFICULTY [None]
  - PYREXIA [None]
